FAERS Safety Report 7946218-2 (Version None)
Quarter: 2011Q4

REPORT INFORMATION
  Report Type: 
  Country: None (occurrence: None)
  Receive Date: 20111123
  Receipt Date: 20111111
  Transmission Date: 20120403
  Serious: Yes (Disabling, Other)
  Sender: FDA-Public Use
  Company Number: GB-1188971

PATIENT
  Age: 83 Year
  Sex: Male

DRUGS (2)
  1. FLUORESCITE [Suspect]
     Dosage: (4 ML INTRAVENOUS BOLUS)
     Route: 040
     Dates: start: 20111027, end: 20111027
  2. ASPIRIN [Concomitant]

REACTIONS (2)
  - RASH [None]
  - URTICARIA [None]
